FAERS Safety Report 7161392-6 (Version None)
Quarter: 2010Q4

REPORT INFORMATION
  Report Type: 
  Country: None (occurrence: None)
  Receive Date: 20101123
  Receipt Date: 20091112
  Transmission Date: 20110411
  Serious: No
  Sender: FDA-Public Use
  Company Number: 8054679

PATIENT
  Sex: Female

DRUGS (2)
  1. CERTOLIZUMAB PEGOL (UCB, INC) [Suspect]
     Dosage: (400 MG, MONTHLY DOSE FREQ.: ONCE MONTHLY SUBCUTANEOUS)
     Route: 058
     Dates: start: 20090126
  2. NEURONTIN [Suspect]
     Indication: HEPATIC PAIN

REACTIONS (3)
  - HEPATIC PAIN [None]
  - INFREQUENT BOWEL MOVEMENTS [None]
  - RHINITIS [None]
